FAERS Safety Report 6175094-6 (Version None)
Quarter: 2009Q2

REPORT INFORMATION
  Report Type: 
  Country: None (occurrence: None)
  Receive Date: 20090430
  Receipt Date: 20090224
  Transmission Date: 20091009
  Serious: No
  Sender: FDA-Public Use
  Company Number: US-ASTRAZENECA-2009UW05176

PATIENT

DRUGS (1)
  1. NEXIUM [Suspect]
     Dosage: TOOK 5 CAPSULES ONCE
     Route: 048
     Dates: start: 20090224

REACTIONS (2)
  - ACCIDENTAL OVERDOSE [None]
  - VOMITING [None]
